FAERS Safety Report 4705913-9 (Version None)
Quarter: 2005Q2

REPORT INFORMATION
  Report Type: 
  Country: None (occurrence: None)
  Receive Date: 20050629
  Receipt Date: 20050310
  Transmission Date: 20051028
  Serious: Yes (Other)
  Sender: FDA-Public Use
  Company Number: PAR_0079_2005

PATIENT
  Sex: Male

DRUGS (2)
  1. ISOPTIN [Suspect]
     Dosage: DF
  2. IODINE [Suspect]
     Dosage: DF IV
     Route: 042

REACTIONS (4)
  - ARTHRALGIA [None]
  - PYREXIA [None]
  - RASH ERYTHEMATOUS [None]
  - URTICARIA [None]
